FAERS Safety Report 21708048 (Version 1)
Quarter: 2022Q4

REPORT INFORMATION
  Report Type: Spontaneous
  Country: JP (occurrence: JP)
  Receive Date: 20221209
  Receipt Date: 20221209
  Transmission Date: 20230113
  Serious: Yes (Hospitalization, Other)
  Sender: FDA-Public Use
  Company Number: JP-ANIPHARMA-2022-JP-000555

PATIENT
  Age: 76 Year
  Sex: Female

DRUGS (16)
  1. CANDESARTAN CILEXETIL\HYDROCHLOROTHIAZIDE [Suspect]
     Active Substance: CANDESARTAN CILEXETIL\HYDROCHLOROTHIAZIDE
     Indication: Hypertension
     Dosage: DOSAGE FORM = 8MG CANDESARTAN CILEXETIL + 6.25MG HYDROCHLOROTHIAZIDE
     Route: 048
     Dates: end: 20211010
  2. ACT EZETIMIBE [Concomitant]
     Dosage: 10 MG DAILY
     Route: 048
  3. MONTELUKAST SODIUM [Concomitant]
     Active Substance: MONTELUKAST SODIUM
     Dosage: 10 MG DAILY
     Route: 048
  4. LOXOPROFEN SODIUM DIHYDRATE [Concomitant]
     Active Substance: LOXOPROFEN SODIUM DIHYDRATE
     Dosage: QD
     Route: 065
  5. EPERISONE HYDROCHLORIDE [Concomitant]
     Active Substance: EPERISONE HYDROCHLORIDE
     Dosage: 150 MG DAILY
     Route: 048
  6. DIPHENIDOL HYDROCHLORIDE [Concomitant]
     Active Substance: DIPHENIDOL HYDROCHLORIDE
     Dosage: 25 MILLIGRAM, WHEN GIDDINESS OCCURED
     Route: 065
  7. ADETPHOS [Concomitant]
     Active Substance: ADENOSINE TRIPHOSPHATE
     Dosage: 180 MG DAILY
     Route: 048
  8. METHYLCOBALAMIN [Concomitant]
     Active Substance: METHYLCOBALAMIN
     Dosage: 1500 MG DAILY
     Route: 048
  9. TRICHLORMETHIAZIDE [Suspect]
     Active Substance: TRICHLORMETHIAZIDE
     Dosage: 2 MG DAILY
     Route: 048
     Dates: end: 20211010
  10. FUROSEMIDE [Suspect]
     Active Substance: FUROSEMIDE
     Dosage: 20 MG DAILY
     Route: 048
     Dates: end: 20211010
  11. LYRICA [Concomitant]
     Active Substance: PREGABALIN
     Dosage: 25 MG DAILY
     Route: 048
     Dates: start: 20210929, end: 20211009
  12. TRAMCET [Concomitant]
     Active Substance: ACETAMINOPHEN\TRAMADOL
     Dosage: 1 DOSAGE FORM, BID, MORNING AND EVENING
     Route: 048
     Dates: start: 20210929, end: 20211009
  13. METOCLOPRAMIDE [Concomitant]
     Active Substance: METOCLOPRAMIDE
     Dosage: 10 MG DAILY
     Route: 048
     Dates: start: 20210929, end: 20211009
  14. REBAMIPIDE [Concomitant]
     Active Substance: REBAMIPIDE
     Dosage: 300 MG DAILY
     Route: 048
  15. PILSICAINIDE HCL [Concomitant]
     Dosage: 150 MG DAILY
     Route: 048
  16. EDOXABAN TOSYLATE [Concomitant]
     Active Substance: EDOXABAN TOSYLATE
     Dosage: 30, MORNING TIME INTERVAL
     Route: 065

REACTIONS (4)
  - Spinal compression fracture [Unknown]
  - Hyponatraemia [Recovering/Resolving]
  - Hypokalaemia [Recovered/Resolved]
  - Atrioventricular block [Unknown]

NARRATIVE: CASE EVENT DATE: 20210830
